FAERS Safety Report 5774758-3 (Version None)
Quarter: 2008Q2

REPORT INFORMATION
  Report Type: 
  Country: None (occurrence: None)
  Receive Date: 20080612
  Receipt Date: 20080506
  Transmission Date: 20081010
  Serious: Yes (Other)
  Sender: FDA-Public Use
  Company Number: 2008003946

PATIENT
  Sex: Male

DRUGS (1)
  1. ROGAINE [Suspect]
     Dosage: TOPICAL
     Route: 061

REACTIONS (7)
  - AURICULAR SWELLING [None]
  - BURNING SENSATION [None]
  - DRUG HYPERSENSITIVITY [None]
  - EYE SWELLING [None]
  - FEELING ABNORMAL [None]
  - HYPERAESTHESIA [None]
  - RASH [None]
